FAERS Safety Report 7068048-9 (Version None)
Quarter: 2010Q4

REPORT INFORMATION
  Report Type: 
  Country: None (occurrence: None)
  Receive Date: 20101028
  Receipt Date: 20101019
  Transmission Date: 20110411
  Serious: Yes (Hospitalization, Other)
  Sender: FDA-Public Use
  Company Number: US-SANOFI-AVENTIS-2010SA063970

PATIENT
  Age: 55 Year
  Sex: Female

DRUGS (3)
  1. LANTUS [Suspect]
     Indication: TYPE 2 DIABETES MELLITUS
     Dosage: DOSE:65 UNIT(S)
     Route: 058
     Dates: start: 20020101
  2. OPTICLICK [Suspect]
     Indication: TYPE 2 DIABETES MELLITUS
  3. LORTAB [Suspect]
     Indication: FLANK PAIN
     Route: 065
     Dates: start: 20050101, end: 20050101

REACTIONS (7)
  - CATARACT [None]
  - DRUG HYPERSENSITIVITY [None]
  - EYE HAEMORRHAGE [None]
  - FLANK PAIN [None]
  - HAEMATEMESIS [None]
  - RETINAL INFARCTION [None]
  - VISION BLURRED [None]
